FAERS Safety Report 6746742-4 (Version None)
Quarter: 2010Q2

REPORT INFORMATION
  Report Type: 
  Country: None (occurrence: None)
  Receive Date: 20100528
  Receipt Date: 20090701
  Transmission Date: 20101027
  Serious: No
  Sender: FDA-Public Use
  Company Number: A0795010A

PATIENT
  Sex: Male

DRUGS (2)
  1. VENTOLIN [Suspect]
     Indication: ASTHMA
     Dosage: 2PUFF AS REQUIRED
     Route: 055
     Dates: start: 20080901
  2. PRILOSEC [Concomitant]

REACTIONS (4)
  - DYSPHONIA [None]
  - OROPHARYNGEAL PAIN [None]
  - PHARYNGEAL DISORDER [None]
  - PHARYNGEAL INFLAMMATION [None]
